FAERS Safety Report 9097375 (Version 3)
Quarter: 2014Q1

REPORT INFORMATION
  Report Type: Report from Study
  Country: US (occurrence: US)
  Receive Date: 20130212
  Receipt Date: 20140114
  Transmission Date: 20141002
  Serious: Yes (Other)
  Sender: FDA-Public Use
  Company Number: US-PFIZER INC-2013054867

PATIENT
  Age: 26 Year
  Sex: Female

DRUGS (2)
  1. VIRACEPT [Suspect]
     Indication: ANTIRETROVIRAL THERAPY
     Dosage: 2500 MG, DAILY
     Route: 048
     Dates: start: 20020701
  2. COMBIVIR [Suspect]
     Indication: ANTIRETROVIRAL THERAPY
     Dosage: 2 DF, DAILY
     Route: 048
     Dates: start: 20020701

REACTIONS (1)
  - Abortion spontaneous [Unknown]
